FAERS Safety Report 6577032-0 (Version None)
Quarter: 2010Q1

REPORT INFORMATION
  Report Type: 
  Country: None (occurrence: None)
  Receive Date: 20100210
  Receipt Date: 20100129
  Transmission Date: 20100710
  Serious: Yes (Hospitalization, Other)
  Sender: FDA-Public Use
  Company Number: JP-ELI_LILLY_AND_COMPANY-JP201001000522

PATIENT
  Sex: Female
  Weight: 49.9 kg

DRUGS (11)
  1. GEMCITABINE HCL [Suspect]
     Indication: PANCREATIC CARCINOMA NON-RESECTABLE
     Dosage: 1000 MG/M2, OTHER
     Route: 042
     Dates: start: 20090521, end: 20091217
  2. BLINDED THERAPY [Suspect]
     Indication: PANCREATIC CARCINOMA NON-RESECTABLE
     Dosage: 2 MG, OTHER
     Route: 058
     Dates: start: 20090521, end: 20091217
  3. SEROTONE [Concomitant]
     Dosage: 10 MG, UNKNOWN
     Route: 042
     Dates: start: 20090521
  4. ALOSENN                            /00476901/ [Concomitant]
     Dosage: 0.5 G, 2/D
     Route: 048
  5. MAGNESIUM OXIDE [Concomitant]
     Dosage: 0.67 G, 3/D
     Route: 048
  6. LOXONIN [Concomitant]
     Dosage: 60 MG, 3/D
     Route: 048
  7. LASIX [Concomitant]
     Dosage: 20 MG, 2/D
     Route: 048
     Dates: start: 20091001
  8. TAKEPRON [Concomitant]
     Dosage: 30 MG, DAILY (1/D)
     Route: 048
     Dates: start: 20091112
  9. ALDACTONE [Concomitant]
     Dosage: 25 MG, 2/D
     Route: 048
     Dates: start: 20091126, end: 20091227
  10. PRIMPERAN /00041901/ [Concomitant]
     Indication: VOMITING
     Dosage: UNK, UNKNOWN
     Route: 065
     Dates: start: 20091001
  11. NAUZELIN [Concomitant]
     Indication: VOMITING
     Dosage: UNK, UNKNOWN
     Route: 054
     Dates: start: 20091001

REACTIONS (6)
  - ANAEMIA [None]
  - CARDIAC FAILURE CONGESTIVE [None]
  - HYPOXIA [None]
  - MALIGNANT NEOPLASM PROGRESSION [None]
  - OEDEMA [None]
  - PLEURAL EFFUSION [None]
